FAERS Safety Report 21549285 (Version 1)
Quarter: 2022Q4

REPORT INFORMATION
  Report Type: Spontaneous
  Country: US (occurrence: US)
  Receive Date: 20221103
  Receipt Date: 20221103
  Transmission Date: 20230113
  Serious: Yes (Hospitalization, Other)
  Sender: FDA-Public Use
  Company Number: US-ELI_LILLY_AND_COMPANY-US202210010817

PATIENT
  Sex: Female

DRUGS (2)
  1. HUMALOG [Suspect]
     Active Substance: INSULIN LISPRO
     Indication: Type 2 diabetes mellitus
     Dosage: 6-8 U, OTHER (THREE TO FOUR TIMES A DAY)
     Route: 058
  2. ELIQUIS [Concomitant]
     Active Substance: APIXABAN
     Indication: Postoperative care

REACTIONS (5)
  - Blood iron decreased [Unknown]
  - Vascular rupture [Unknown]
  - Haemorrhage [Unknown]
  - Venous occlusion [Unknown]
  - Blood glucose increased [Unknown]
